FAERS Safety Report 21304934 (Version 2)
Quarter: 2022Q4

REPORT INFORMATION
  Report Type: Report from Study
  Country: US (occurrence: US)
  Receive Date: 20220907
  Receipt Date: 20221109
  Transmission Date: 20230112
  Serious: Yes (Hospitalization, Other)
  Sender: FDA-Public Use
  Company Number: US-ABBVIE-22K-163-4530671-00

PATIENT
  Age: 40 Year
  Sex: Female
  Weight: 65.77 kg

DRUGS (13)
  1. HUMIRA [Suspect]
     Active Substance: ADALIMUMAB
     Indication: Hidradenitis
     Route: 058
     Dates: start: 201912, end: 20221002
  2. NORETHINDRONE [Concomitant]
     Active Substance: NORETHINDRONE
     Indication: Hormone level abnormal
  3. TOPIRAMATE [Concomitant]
     Active Substance: TOPIRAMATE
     Indication: Migraine
  4. PFIZER-BIONTECH COVID-19 VACCINE [Concomitant]
     Active Substance: TOZINAMERAN
     Indication: COVID-19 immunisation
     Dosage: TIME INTERVAL: 1 TOTAL
     Route: 030
  5. PHENTERMINE [Concomitant]
     Active Substance: PHENTERMINE
     Indication: Weight control
  6. Bariatric multivitamin [Concomitant]
     Indication: Supplementation therapy
  7. VITAMIN D [Concomitant]
     Active Substance: VITAMIN D NOS
     Indication: Vitamin supplementation
  8. AQUASOL A [Concomitant]
     Active Substance: VITAMIN A PALMITATE
     Indication: Supplementation therapy
  9. IRON [Concomitant]
     Active Substance: IRON
     Indication: Supplementation therapy
  10. SPIRONOLACTONE [Concomitant]
     Active Substance: SPIRONOLACTONE
     Indication: Inflammation
  11. VITAMIN A [Concomitant]
     Active Substance: VITAMIN A
     Indication: Vitamin supplementation
  12. VITAMIN C [Concomitant]
     Active Substance: ASCORBIC ACID
     Indication: Vitamin supplementation
  13. VITAMIN B [Concomitant]
     Active Substance: VITAMIN B
     Indication: Vitamin supplementation

REACTIONS (2)
  - Systemic lupus erythematosus [Not Recovered/Not Resolved]
  - Bacterial infection [Recovered/Resolved]

NARRATIVE: CASE EVENT DATE: 20220818
